FAERS Safety Report 11275763 (Version 1)
Quarter: 2015Q2

REPORT INFORMATION
  Report Type: Spontaneous
  Country: US (occurrence: None)
  Receive Date: 20150625
  Receipt Date: 20150625
  Transmission Date: 20150821
  Serious: Yes (Other)
  Sender: FDA-Public Use
  Company Number: PHEH2015US004072

PATIENT
  Age: 44 Year
  Sex: Female

DRUGS (1)
  1. ZYKADIA [Suspect]
     Active Substance: CERITINIB
     Indication: LUNG ADENOCARCINOMA
     Route: 048
     Dates: start: 20140806, end: 20150117

REACTIONS (7)
  - Abdominal pain [None]
  - Epigastric discomfort [None]
  - Malignant neoplasm progression [None]
  - Drug intolerance [None]
  - Metastases to liver [None]
  - Renal mass [None]
  - Lung adenocarcinoma [None]
